FAERS Safety Report 22014828 (Version 4)
Quarter: 2023Q2

REPORT INFORMATION
  Report Type: Spontaneous
  Country: US (occurrence: US)
  Receive Date: 20230221
  Receipt Date: 20230613
  Transmission Date: 20230721
  Serious: No
  Sender: FDA-Public Use
  Company Number: US-BRISTOL-MYERS SQUIBB COMPANY-2023-025274

PATIENT
  Age: 78 Year
  Sex: Female
  Weight: 68.95 kg

DRUGS (1)
  1. POMALYST [Suspect]
     Active Substance: POMALIDOMIDE
     Indication: Plasma cell myeloma
     Dosage: FREQUENCY: 3WEEKS, 1WEEK OFF
     Route: 048
     Dates: start: 20230101

REACTIONS (23)
  - Diarrhoea [Unknown]
  - Abdominal discomfort [Unknown]
  - Pollakiuria [Unknown]
  - Joint stiffness [Unknown]
  - Gingival pain [Unknown]
  - Fatigue [Unknown]
  - Swelling [Unknown]
  - Blister [Unknown]
  - Rash [Unknown]
  - Muscle spasms [Unknown]
  - Heart rate irregular [Unknown]
  - Lymphadenopathy [Unknown]
  - Oral pain [Unknown]
  - Mouth swelling [Unknown]
  - Paraesthesia [Unknown]
  - Dizziness [Unknown]
  - Fatigue [Unknown]
  - Mood swings [Unknown]
  - Amnesia [Unknown]
  - Weight increased [Unknown]
  - Tremor [Unknown]
  - Pain in jaw [Unknown]
  - Gingivitis [Unknown]
